FAERS Safety Report 12907049 (Version 1)
Quarter: 2016Q4

REPORT INFORMATION
  Report Type: Spontaneous
  Country: US (occurrence: US)
  Receive Date: 20161103
  Receipt Date: 20161103
  Transmission Date: 20170207
  Serious: Yes (Other)
  Sender: FDA-Public Use
  Company Number: US-TEVA-708059ACC

PATIENT
  Age: 40 Year
  Sex: Female
  Weight: 75.82 kg

DRUGS (2)
  1. OTC VITAMINS [Concomitant]
     Indication: SUPPLEMENTATION THERAPY
  2. PARAGARD T 380A [Suspect]
     Active Substance: COPPER
     Indication: CONTRACEPTION
     Dates: start: 20160414, end: 20161014

REACTIONS (3)
  - Device dislocation [Recovered/Resolved]
  - Flank pain [Recovered/Resolved]
  - Blood urine present [Recovered/Resolved]

NARRATIVE: CASE EVENT DATE: 20160920
